FAERS Safety Report 9522831 (Version 1)
Quarter: 2013Q1

REPORT INFORMATION
  Report Type: Spontaneous
  Country: US (occurrence: None)
  Receive Date: 20130305
  Receipt Date: 20130305
  Transmission Date: 20140127
  Serious: Yes (Hospitalization, Other)
  Sender: FDA-Public Use
  Company Number: 163-21880-12070575

PATIENT
  Age: 81 Year
  Sex: Male

DRUGS (3)
  1. REVLIMID (LENALIDOMIDE) (CAPSULES) [Suspect]
     Indication: PLASMA CELL MYELOMA
     Dosage: 10 MG, 21 IN 21 D, PO
     Route: 048
     Dates: start: 20120607
  2. VELCADE (BORTEZOMIB) [Concomitant]
  3. DEXAMETHASONE (DEXAMETHASONE) [Concomitant]

REACTIONS (5)
  - Haemoglobin decreased [None]
  - Confusional state [None]
  - Dehydration [None]
  - Pain [None]
  - Oedema peripheral [None]
